FAERS Safety Report 16564679 (Version 1)
Quarter: 2019Q3

REPORT INFORMATION
  Report Type: Spontaneous
  Country: DE (occurrence: DE)
  Receive Date: 20190712
  Receipt Date: 20190712
  Transmission Date: 20191004
  Serious: Yes (Hospitalization)
  Sender: FDA-Public Use
  Company Number: DE-ACCORD-138175

PATIENT
  Age: 61 Year
  Sex: Female
  Weight: 52 kg

DRUGS (14)
  1. MAGNESIUM HYDROXIDE. [Concomitant]
     Active Substance: MAGNESIUM HYDROXIDE
     Dosage: 1-1-0, CHEWABLE TABLETS
     Route: 048
  2. DEXAMETHASONE. [Concomitant]
     Active Substance: DEXAMETHASONE
     Dosage: 8 MG, 04.08.2017-06.08.2017, TABLETS?12 MG, 1-0-1, AM 03.08.2017,TABLETS
     Route: 048
  3. ETOPOSIDE. [Suspect]
     Active Substance: ETOPOSIDE
     Indication: PRODUCT USED FOR UNKNOWN INDICATION
     Dosage: 100 MG/M2, 04-8-2017-06-08-2017, SOLUTION FOR INJECTION / INFUSION
     Route: 042
  4. MESNA. [Concomitant]
     Active Substance: MESNA
     Dosage: 1000 MG / M 2, 05.08.2017, SOLUTION FOR INJECTION / INFUSION
     Route: 042
  5. MAGNESIUM HYDROXIDE. [Concomitant]
     Active Substance: MAGNESIUM HYDROXIDE
     Dosage: 1-1-0, CHEWABLE TABLETS
     Route: 048
  6. ONDANSETRON [Concomitant]
     Active Substance: ONDANSETRON
     Dosage: 8 MG, 1-0-1,05.08.2017-08.08.2017, TABLETS
     Route: 048
  7. CARBOPLATIN. [Suspect]
     Active Substance: CARBOPLATIN
     Indication: PRODUCT USED FOR UNKNOWN INDICATION
     Dosage: 5 AUC, 05.08.2017, SOLUTION FOR INJECTION / INFUSION
     Route: 042
  8. IFOSFAMIDE. [Suspect]
     Active Substance: IFOSFAMIDE
     Indication: PRODUCT USED FOR UNKNOWN INDICATION
     Dosage: 5000 MG / M 2, 05.08.2017, SOLUTION FOR INJECTION / INFUSION
     Route: 042
  9. PANTOPRAZOLE [Concomitant]
     Active Substance: PANTOPRAZOLE
     Dosage: 20 MG, 1-0-0, TABLET
     Route: 048
  10. COTRIM [Concomitant]
     Active Substance: SULFAMETHOXAZOLE\TRIMETHOPRIM
     Dosage: 800 /160 MG, 1-0-1  MO: MI, FR, TABLETS
     Route: 048
  11. LEVOTHYROXINE. [Concomitant]
     Active Substance: LEVOTHYROXINE
     Dosage: 1-0-0, TABLET
     Route: 048
  12. DEXAMETHASONE. [Concomitant]
     Active Substance: DEXAMETHASONE
     Dosage: 8 MG, 04.08.2017-06.08.2017, TABLETS
     Route: 048
  13. MESNA. [Concomitant]
     Active Substance: MESNA
     Dosage: 5000 MG/M 2 OVER 24H, 05.08.2017-06.08.2017, SOLUTION FOR INJECTION / INFUSION
     Route: 042
  14. FILGRASTIM [Concomitant]
     Active Substance: FILGRASTIM
     Dosage: 08-08-2017, SOLUTION FOR INJECTION / INFUSION
     Route: 058

REACTIONS (4)
  - Mucosal inflammation [Unknown]
  - Pyrexia [Unknown]
  - Headache [Unknown]
  - Nausea [Unknown]
